FAERS Safety Report 25479181 (Version 1)
Quarter: 2025Q2

REPORT INFORMATION
  Report Type: Spontaneous
  Country: IT (occurrence: IT)
  Receive Date: 20250625
  Receipt Date: 20250625
  Transmission Date: 20250716
  Serious: Yes (Hospitalization)
  Sender: MYLAN
  Company Number: IT-THEA-2025001502

PATIENT
  Age: 7 Year
  Sex: Male

DRUGS (8)
  1. CETIRIZINE [Suspect]
     Active Substance: CETIRIZINE HYDROCHLORIDE
     Indication: Vernal keratoconjunctivitis
     Dosage: 10 GTT DROPS, QD, 10 DROPS ONCE A DAY
  2. CETIRIZINE [Suspect]
     Active Substance: CETIRIZINE HYDROCHLORIDE
     Dosage: 10 GTT DROPS, QD, 10 DROPS ONCE A DAY
     Route: 048
  3. CETIRIZINE [Suspect]
     Active Substance: CETIRIZINE HYDROCHLORIDE
     Dosage: 10 GTT DROPS, QD, 10 DROPS ONCE A DAY
     Route: 048
  4. CETIRIZINE [Suspect]
     Active Substance: CETIRIZINE HYDROCHLORIDE
     Dosage: 10 GTT DROPS, QD, 10 DROPS ONCE A DAY
  5. KETOTIFEN [Suspect]
     Active Substance: KETOTIFEN
     Indication: Vernal keratoconjunctivitis
     Dosage: 1 DOSAGE FORM, BID,1 DROP TWICE A DAY FOR TWO WEEKS
  6. KETOTIFEN [Suspect]
     Active Substance: KETOTIFEN
     Dosage: 1 DOSAGE FORM, BID,1 DROP TWICE A DAY FOR TWO WEEKS
     Route: 047
  7. KETOTIFEN [Suspect]
     Active Substance: KETOTIFEN
     Dosage: 1 DOSAGE FORM, BID,1 DROP TWICE A DAY FOR TWO WEEKS
     Route: 047
  8. KETOTIFEN [Suspect]
     Active Substance: KETOTIFEN
     Dosage: 1 DOSAGE FORM, BID,1 DROP TWICE A DAY FOR TWO WEEKS

REACTIONS (2)
  - Dry eye [Unknown]
  - Drug ineffective [Unknown]
